FAERS Safety Report 9109533 (Version 1)
Quarter: 2013Q1

REPORT INFORMATION
  Report Type: Spontaneous
  Country: FR (occurrence: FR)
  Receive Date: 20130222
  Receipt Date: 20130222
  Transmission Date: 20140127
  Serious: Yes (Hospitalization)
  Sender: FDA-Public Use
  Company Number: PHHY2013FR016672

PATIENT
  Age: 61 None
  Sex: Male

DRUGS (3)
  1. AMOXICILLIN+CLAVULANATE SANDOZ [Suspect]
     Indication: INFECTION
     Dosage: 1 DF, QD
     Route: 048
     Dates: start: 20111128, end: 20111207
  2. AMOXICILLIN+CLAVULANATE SANDOZ [Suspect]
     Indication: COUGH
  3. AMOXICILLIN+CLAVULANATE SANDOZ [Suspect]
     Indication: CREPITATIONS

REACTIONS (2)
  - Cholangitis [Recovering/Resolving]
  - Cholestasis [Recovering/Resolving]
